FAERS Safety Report 6346914-7 (Version None)
Quarter: 2009Q3

REPORT INFORMATION
  Report Type: 
  Country: None (occurrence: None)
  Receive Date: 20090910
  Receipt Date: 20090828
  Transmission Date: 20100115
  Serious: Yes (Hospitalization, Other)
  Sender: FDA-Public Use
  Company Number: JP-CELGENEUS-087-50794-08120924

PATIENT
  Sex: Male

DRUGS (35)
  1. VIDAZA [Suspect]
     Route: 051
     Dates: start: 20081203, end: 20081209
  2. VIDAZA [Suspect]
     Route: 051
     Dates: start: 20090409, end: 20090415
  3. VIDAZA [Suspect]
     Route: 051
     Dates: start: 20090604, end: 20090604
  4. SENNOSIDE [Suspect]
     Indication: CONSTIPATION
     Route: 048
  5. RABEPRAZOLE SODIUM [Suspect]
     Indication: PROPHYLAXIS
     Route: 048
  6. CARBOCISTEINE [Suspect]
     Route: 048
  7. CARBOCISTEINE [Suspect]
     Indication: PROPHYLAXIS
  8. CLARITHROMYCIN [Suspect]
     Route: 048
  9. CLARITHROMYCIN [Suspect]
     Indication: PROPHYLAXIS
  10. MAGNESIUM OXIDE [Suspect]
     Indication: CONSTIPATION
     Route: 048
  11. SODIUM PICOSULFATE [Suspect]
     Indication: CONSTIPATION
     Route: 048
     Dates: start: 20081207, end: 20081211
  12. MEROPENEM TRIHYDRATE [Suspect]
     Indication: INFECTION PROPHYLAXIS
     Route: 051
  13. VANCOMYCIN HYDROCHLORIDE [Suspect]
     Indication: INFECTION PROPHYLAXIS
     Route: 051
  14. COLIBACILLUS VACCINE/HYDROCORTISONE [Concomitant]
     Indication: HAEMORRHOIDS
     Route: 054
     Dates: start: 20081209, end: 20081214
  15. ISOTONIC SODIUM CHLORIDE SOLUTION [Concomitant]
     Indication: DRUG USE FOR UNKNOWN INDICATION
     Route: 051
  16. POTASSIUM CHLORIDE [Concomitant]
     Indication: HYPOKALAEMIA
     Route: 051
  17. DIPHENHYDRAMINE HCL [Concomitant]
     Indication: ECZEMA ASTEATOTIC
     Dosage: PROPER QUANTITY
  18. WHITE PETROLATUM [Concomitant]
     Indication: DRY SKIN PROPHYLAXIS
  19. HYDROCORTISONE ACETATE [Concomitant]
     Indication: ECZEMA
     Dosage: PROPER QUANTITY
  20. MOMETASONE FUROATE [Concomitant]
     Indication: ECZEMA
     Dosage: PROPER QUANTITY
  21. AZULENE SULFONATE SODIUM [Concomitant]
     Indication: INFECTION PROPHYLAXIS
     Dosage: PROPER QUANTITY
     Route: 048
  22. CEPHEPIME DIHYDROCHLORIDE [Concomitant]
     Indication: INFECTION PROPHYLAXIS
     Route: 048
     Dates: start: 20090510
  23. ACETAMINOPHEN [Concomitant]
     Indication: COMPRESSION FRACTURE
     Route: 048
  24. OXYCODONE HCL [Concomitant]
     Indication: COMPRESSION FRACTURE
     Route: 048
  25. OXYCODONE HCL [Concomitant]
     Route: 048
  26. BROTIZOLAM [Concomitant]
     Route: 048
  27. HEPARIN SODIUM [Concomitant]
     Indication: PROPHYLAXIS
     Route: 051
  28. CHLORPHENIRAMINE MALEATE [Concomitant]
     Indication: ALLERGY PROPHYLAXIS
     Route: 051
  29. HYDROCORTISONE SODIUM SUCCINATE [Concomitant]
     Indication: ALLERGY PROPHYLAXIS
     Route: 051
  30. FUROSEMIDE [Concomitant]
     Route: 051
  31. MIXED AMINO ACID CARBOHYDRATE ELECTROLYTE VITAMIN [Concomitant]
     Indication: FLUID REPLACEMENT
     Route: 051
  32. MANGANESE CHLORIDE ZINC SULFATE COMBINED DRUG [Concomitant]
     Indication: TRACE ELEMENT DEFICIENCY
     Route: 051
  33. OMEPRAZOLE SODIUM [Concomitant]
     Indication: PROPHYLAXIS
     Route: 051
  34. GRANISETRON HYDROCHLORIDE [Concomitant]
     Indication: PREMEDICATION
     Route: 051
  35. MANGANESE CHLORIDE ZINC SULFATE COMBINED [Concomitant]
     Indication: TRACE ELEMENT DEFICIENCY
     Route: 051

REACTIONS (3)
  - FEBRILE NEUTROPENIA [None]
  - GASTRIC CANCER [None]
  - URINARY RETENTION [None]
